FAERS Safety Report 13347734 (Version 2)
Quarter: 2017Q2

REPORT INFORMATION
  Report Type: Spontaneous
  Country: SA (occurrence: SA)
  Receive Date: 20170317
  Receipt Date: 20170412
  Transmission Date: 20170830
  Serious: Yes (Hospitalization)
  Sender: FDA-Public Use
  Company Number: SA-BIOMARINAP-SA-2017-113268

PATIENT
  Age: 7 Year
  Sex: Female
  Weight: 19.5 kg

DRUGS (1)
  1. NAGLAZYME [Suspect]
     Active Substance: GALSULFASE
     Indication: MUCOPOLYSACCHARIDOSIS VI
     Dosage: 20 MG, QW
     Route: 042
     Dates: start: 20120314

REACTIONS (1)
  - Cardiomyopathy [Recovering/Resolving]

NARRATIVE: CASE EVENT DATE: 20170309
